FAERS Safety Report 20587149 (Version 1)
Quarter: 2022Q1

REPORT INFORMATION
  Report Type: Spontaneous
  Country: US (occurrence: US)
  Receive Date: 20220314
  Receipt Date: 20220314
  Transmission Date: 20220424
  Serious: No
  Sender: FDA-Public Use
  Company Number: US-BAUSCH-BL-2022-006313

PATIENT
  Age: 50 Year
  Sex: Female
  Weight: 74.910 kg

DRUGS (2)
  1. LUMIFY [Suspect]
     Active Substance: BRIMONIDINE TARTRATE
     Indication: Ocular hyperaemia
     Dosage: ONE DROP INTO BOTH EYES
     Route: 047
     Dates: start: 20220307
  2. LUMIFY [Suspect]
     Active Substance: BRIMONIDINE TARTRATE

REACTIONS (2)
  - Head discomfort [Unknown]
  - Headache [Unknown]

NARRATIVE: CASE EVENT DATE: 20220301
